FAERS Safety Report 21393459 (Version 1)
Quarter: 2022Q3

REPORT INFORMATION
  Report Type: Report from Study
  Country: AT (occurrence: AT)
  Receive Date: 20220929
  Receipt Date: 20220929
  Transmission Date: 20221027
  Serious: Yes (Hospitalization, Other)
  Sender: FDA-Public Use
  Company Number: AT-CELGENE-AUT-20200106148

PATIENT
  Age: 66 Year
  Sex: Female
  Weight: 81 kg

DRUGS (24)
  1. ELOTUZUMAB [Suspect]
     Active Substance: ELOTUZUMAB
     Indication: Plasma cell myeloma
     Dosage: FREQUENCY TEXT: NOT PROIVDED?850 MILLIGRAM
     Route: 042
     Dates: start: 20200102, end: 20200108
  2. ELOTUZUMAB [Suspect]
     Active Substance: ELOTUZUMAB
     Dosage: FREQUENCY TEXT: NOT PROIVDED?850 MILLIGRAM
     Route: 042
     Dates: start: 202001, end: 20200116
  3. ELOTUZUMAB [Suspect]
     Active Substance: ELOTUZUMAB
     Dosage: FREQUENCY TEXT: NOT PROIVDED?810 MILLIGRAM
     Route: 042
     Dates: start: 20200130, end: 20200206
  4. ELOTUZUMAB [Suspect]
     Active Substance: ELOTUZUMAB
     Dosage: FREQUENCY TEXT: NOT PROIVDED?810 MILLIGRAM
     Route: 042
     Dates: start: 20200214, end: 20200227
  5. DEXAMETHASONE [Suspect]
     Active Substance: DEXAMETHASONE
     Indication: Plasma cell myeloma
     Dosage: FREQUENCY TEXT: NOT PROVIDED?28 MG
     Route: 048
     Dates: start: 20200102, end: 20200109
  6. DEXAMETHASONE [Suspect]
     Active Substance: DEXAMETHASONE
     Dosage: FREQUENCY TEXT: NOT PROVIDED?28 MG
     Route: 048
     Dates: start: 202001, end: 20200116
  7. DEXAMETHASONE [Suspect]
     Active Substance: DEXAMETHASONE
     Dosage: FREQUENCY TEXT: NOT PROVIDED?8 MG
     Route: 042
     Dates: start: 20200102, end: 20200109
  8. DEXAMETHASONE [Suspect]
     Active Substance: DEXAMETHASONE
     Dosage: FREQUENCY TEXT: NOT PROVIDED?8 MG
     Route: 042
     Dates: start: 202001, end: 20200116
  9. DEXAMETHASONE [Suspect]
     Active Substance: DEXAMETHASONE
     Dosage: FREQUENCY TEXT: NOT PROVIDED?28 MG
     Route: 048
     Dates: start: 20200130, end: 20200206
  10. DEXAMETHASONE [Suspect]
     Active Substance: DEXAMETHASONE
     Dosage: FREQUENCY TEXT: NOT PROVIDED?8 MG
     Route: 042
     Dates: start: 20200130, end: 20200206
  11. DEXAMETHASONE [Suspect]
     Active Substance: DEXAMETHASONE
     Dosage: FREQUENCY TEXT: NOT PROVIDED?28 MILLIGRAM
     Route: 042
     Dates: start: 20200214, end: 20200306
  12. DEXAMETHASONE [Suspect]
     Active Substance: DEXAMETHASONE
     Dosage: FREQUENCY TEXT: NOT PROVIDED?8 MILLIGRAM
     Route: 042
     Dates: start: 20200214, end: 20210306
  13. LENALIDOMIDE [Suspect]
     Active Substance: LENALIDOMIDE
     Indication: Plasma cell myeloma
     Dosage: FREQUENCY TEXT: NOT PROVIDED?25 MILLIGRAM
     Route: 048
     Dates: start: 20200102, end: 20200116
  14. LENALIDOMIDE [Suspect]
     Active Substance: LENALIDOMIDE
     Dosage: FREQUENCY TEXT: NOT PROVIDED?25 MILLIGRAM
     Route: 048
     Dates: start: 202001, end: 20200117
  15. LENALIDOMIDE [Suspect]
     Active Substance: LENALIDOMIDE
     Dosage: FREQUENCY TEXT: NOT PROVIDED?25 MILLIGRAM
     Route: 048
     Dates: start: 20200130, end: 20200206
  16. LENALIDOMIDE [Suspect]
     Active Substance: LENALIDOMIDE
     Dosage: FREQUENCY TEXT: NOT PROVIDED?25 MILLIGRAM
     Route: 048
     Dates: start: 20200214, end: 20200306
  17. CARFILZOMIB [Suspect]
     Active Substance: CARFILZOMIB
     Indication: Plasma cell myeloma
     Dosage: FREQUENCY TEXT: NOT PROVIDED
     Route: 042
  18. CARFILZOMIB [Suspect]
     Active Substance: CARFILZOMIB
     Dosage: FREQUENCY TEXT: NOT PROVIDED
     Route: 065
     Dates: start: 202001, end: 20200116
  19. CARFILZOMIB [Suspect]
     Active Substance: CARFILZOMIB
     Dosage: FREQUENCY TEXT: NOT PROVIDED
     Route: 042
     Dates: start: 20200130, end: 20200206
  20. CARFILZOMIB [Suspect]
     Active Substance: CARFILZOMIB
     Dosage: FREQUENCY TEXT: NOT PROVIDED
     Route: 042
     Dates: start: 20200214, end: 20200306
  21. CARFILZOMIB [Suspect]
     Active Substance: CARFILZOMIB
     Dosage: FREQUENCY TEXT: NOT PROVIDED
     Route: 042
     Dates: start: 20200102, end: 20200110
  22. TEGRETOL [Concomitant]
     Active Substance: CARBAMAZEPINE
     Indication: Epilepsy
     Dosage: 100 MILLIGRAM
     Route: 048
     Dates: start: 1990
  23. FOSTER [Concomitant]
     Active Substance: BECLOMETHASONE\FORMOTEROL
     Indication: Asthma
     Route: 055
     Dates: start: 2014
  24. Hydral retard [Concomitant]
     Indication: Pain
     Dosage: 4 MILLIGRAM
     Route: 048
     Dates: start: 201912

REACTIONS (3)
  - Chills [Recovered/Resolved]
  - Pneumonia streptococcal [Recovered/Resolved]
  - Pneumonia influenzal [Recovered/Resolved]

NARRATIVE: CASE EVENT DATE: 20200115
